FAERS Safety Report 7156182-4 (Version None)
Quarter: 2010Q4

REPORT INFORMATION
  Report Type: 
  Country: None (occurrence: None)
  Receive Date: 20101123
  Receipt Date: 20101007
  Transmission Date: 20110411
  Serious: Yes (Other)
  Sender: FDA-Public Use
  Company Number: 018442

PATIENT
  Sex: Female
  Weight: 124.7 kg

DRUGS (12)
  1. CIMZIA [Suspect]
     Indication: CROHN'S DISEASE
     Dosage: 400 MG 1X/MONTH, 2 SHOTS EVERY MONTH SUBCUTANEOUS
     Route: 058
     Dates: start: 20090901
  2. ENTOCORT (NOT SPECIFIED) [Suspect]
     Indication: CROHN'S DISEASE
     Dosage: 9 MG QD ORAL
     Route: 048
     Dates: start: 20100901
  3. ASACOL [Concomitant]
  4. MERCAPTOPURINE [Concomitant]
  5. LEVOXYL [Concomitant]
  6. LISINOPRIL [Concomitant]
  7. SIMVASTATIN [Concomitant]
  8. NOVOLOG [Concomitant]
  9. MULTI-VITAMIN [Concomitant]
  10. LANTUS [Concomitant]
  11. VITAMINA D TRES BERENGER [Concomitant]
  12. CALCIUM [Concomitant]

REACTIONS (2)
  - CROHN'S DISEASE [None]
  - HEADACHE [None]
